FAERS Safety Report 8209449-2 (Version None)
Quarter: 2012Q1

REPORT INFORMATION
  Report Type: 
  Country: None (occurrence: None)
  Receive Date: 20120314
  Receipt Date: 20120302
  Transmission Date: 20120608
  Serious: Yes (Death)
  Sender: FDA-Public Use
  Company Number: JP-ALEXION-A201200217

PATIENT
  Age: 70 Year
  Sex: Male

DRUGS (6)
  1. SOLIRIS [Suspect]
     Indication: PAROXYSMAL NOCTURNAL HAEMOGLOBINURIA
     Dosage: 600 MG, QW
     Route: 042
     Dates: start: 20120110, end: 20120117
  2. PRODIF [Concomitant]
     Dosage: 100 MG, QD
     Dates: start: 20111124, end: 20120124
  3. PREDNISOLONE [Suspect]
     Dosage: 20 MG, UNK
  4. BLOOD TRANSFUSION, AUXILIARY PRODUCTS [Concomitant]
     Dosage: 2 UNITS
     Route: 042
     Dates: start: 20120124, end: 20120126
  5. ITRACONAZOLE [Concomitant]
     Dosage: 200 MG, QD
     Dates: start: 20111227, end: 20120124
  6. BLOOD TRANSFUSION, AUXILIARY PRODUCTS [Concomitant]
     Dosage: 10 UNITS
     Route: 042
     Dates: start: 20120202, end: 20120206

REACTIONS (8)
  - PNEUMONIA FUNGAL [None]
  - CONDITION AGGRAVATED [None]
  - PNEUMONIA BACTERIAL [None]
  - PNEUMONIA VIRAL [None]
  - PYELONEPHRITIS FUNGAL [None]
  - INFECTION [None]
  - PNEUMONIA [None]
  - PAROXYSMAL NOCTURNAL HAEMOGLOBINURIA [None]
